FAERS Safety Report 5802248-8 (Version None)
Quarter: 2008Q3

REPORT INFORMATION
  Report Type: 
  Country: None (occurrence: None)
  Receive Date: 20080707
  Receipt Date: 20080626
  Transmission Date: 20090109
  Serious: No
  Sender: FDA-Public Use
  Company Number: JP-SANOFI-SYNTHELABO-A01200801219

PATIENT
  Sex: Female
  Weight: 40 kg

DRUGS (10)
  1. ALLEGRA [Suspect]
     Indication: DRUG USE FOR UNKNOWN INDICATION
     Dosage: UNK
     Route: 065
  2. TAIPROTON [Suspect]
     Indication: REFLUX OESOPHAGITIS
     Route: 048
     Dates: start: 20070719, end: 20071115
  3. MAGNESIUM OXIDE [Concomitant]
     Indication: CONSTIPATION
     Route: 048
     Dates: start: 20070507, end: 20080508
  4. SPIRONOLACTONE [Concomitant]
     Indication: HYPOKALAEMIA
     Route: 048
     Dates: start: 20070719, end: 20080508
  5. SPIRONOLACTONE [Concomitant]
     Indication: SWELLING
     Route: 048
     Dates: start: 20070719, end: 20080508
  6. SENEVACUL [Concomitant]
     Indication: CONSTIPATION
     Route: 048
     Dates: start: 20070507, end: 20080508
  7. ASPIRIN [Concomitant]
     Indication: ANGINA PECTORIS
     Route: 048
     Dates: start: 20070705, end: 20080508
  8. NITORBIN [Concomitant]
     Indication: ANGINA PECTORIS
     Route: 048
     Dates: start: 20070705, end: 20080508
  9. NITROUS TAPE [Concomitant]
     Indication: ANGINA PECTORIS
     Route: 062
     Dates: start: 20070705, end: 20080508
  10. PLAVIX [Suspect]
     Indication: ACUTE CORONARY SYNDROME
     Route: 048
     Dates: start: 20070816, end: 20071101

REACTIONS (1)
  - ALOPECIA [None]
